FAERS Safety Report 11927525 (Version 3)
Quarter: 2016Q1

REPORT INFORMATION
  Report Type: Spontaneous
  Country: HU (occurrence: HU)
  Receive Date: 20160119
  Receipt Date: 20160219
  Transmission Date: 20160526
  Serious: Yes (Death, Hospitalization)
  Sender: FDA-Public Use
  Company Number: HU-ACTELION-A-CH2016-129566

PATIENT
  Age: 54 Year
  Sex: Female

DRUGS (4)
  1. TRACLEER [Suspect]
     Active Substance: BOSENTAN
     Indication: PULMONARY ARTERIAL HYPERTENSION
     Dosage: 125 MG, BID
     Route: 048
     Dates: start: 201510, end: 20160109
  2. FURON [Concomitant]
     Active Substance: FUROSEMIDE
     Indication: RIGHT VENTRICULAR FAILURE
     Dosage: 40 MG, OD
     Route: 048
     Dates: start: 201504, end: 20160109
  3. ADCIRCA [Concomitant]
     Active Substance: TADALAFIL
     Indication: PULMONARY ARTERIAL HYPERTENSION
     Dosage: 20 MG, BID
     Route: 048
     Dates: start: 201504, end: 20160109
  4. VEROSPIRON [Concomitant]
     Active Substance: SPIRONOLACTONE
     Indication: RIGHT VENTRICULAR FAILURE
     Dosage: 25 MG, OD
     Route: 048
     Dates: start: 201504, end: 20160109

REACTIONS (18)
  - Asthenia [Fatal]
  - Hepatorenal failure [Fatal]
  - Blood albumin decreased [Fatal]
  - Right ventricular failure [Fatal]
  - Blood bilirubin increased [Fatal]
  - Anaemia [Not Recovered/Not Resolved]
  - Ascites [Fatal]
  - Blood alkaline phosphatase increased [Fatal]
  - Nausea [Fatal]
  - Encephalopathy [Fatal]
  - Hepatomegaly [Fatal]
  - Splenomegaly [Fatal]
  - Hypotension [Fatal]
  - Gamma-glutamyltransferase increased [Fatal]
  - Hydrothorax [Fatal]
  - Somnolence [Fatal]
  - Transfusion [Unknown]
  - Aspartate aminotransferase increased [Fatal]

NARRATIVE: CASE EVENT DATE: 20160105
